FAERS Safety Report 13834273 (Version 1)
Quarter: 2017Q3

REPORT INFORMATION
  Report Type: Report from Study
  Country: US (occurrence: US)
  Receive Date: 20170804
  Receipt Date: 20170804
  Transmission Date: 20171127
  Serious: Yes (Hospitalization)
  Sender: FDA-Public Use
  Company Number: US-ROCHE-1971411

PATIENT
  Age: 19 Year
  Sex: Female
  Weight: 35.41 kg

DRUGS (14)
  1. RITALIN [Concomitant]
     Active Substance: METHYLPHENIDATE HYDROCHLORIDE
  2. ZOFRAN [Concomitant]
     Active Substance: ONDANSETRON HYDROCHLORIDE
  3. BACTRIM DS [Concomitant]
     Active Substance: SULFAMETHOXAZOLE\TRIMETHOPRIM
     Route: 065
     Dates: start: 20130715
  4. ATIVAN [Concomitant]
     Active Substance: LORAZEPAM
     Route: 065
     Dates: start: 20130701
  5. DOLOPHINE [Concomitant]
     Active Substance: METHADONE HYDROCHLORIDE
     Route: 065
     Dates: start: 20130715
  6. COLACE [Concomitant]
     Active Substance: DOCUSATE SODIUM
     Route: 065
     Dates: start: 20130416
  7. EVEROLIMUS [Suspect]
     Active Substance: EVEROLIMUS
     Indication: PERIPHERAL NERVE SHEATH TUMOUR MALIGNANT
     Route: 048
     Dates: start: 20130701
  8. NEURONTIN [Concomitant]
     Active Substance: GABAPENTIN
     Route: 065
     Dates: start: 20130701
  9. LIDODERM [Concomitant]
     Active Substance: LIDOCAINE
     Route: 065
     Dates: end: 20130416
  10. PROTONIX (UNK INGREDIENTS) [Concomitant]
     Route: 065
     Dates: start: 20130715
  11. BEVACIZUMAB. [Suspect]
     Active Substance: BEVACIZUMAB
     Indication: PERIPHERAL NERVE SHEATH TUMOUR MALIGNANT
     Route: 042
     Dates: start: 20130701
  12. MARINOL [Concomitant]
     Active Substance: DRONABINOL
  13. CARAFATE [Concomitant]
     Active Substance: SUCRALFATE
     Route: 065
     Dates: start: 20130715
  14. SENOKOT [Concomitant]
     Active Substance: SENNOSIDES
     Route: 065
     Dates: start: 20130416

REACTIONS (2)
  - Disease progression [Unknown]
  - Pericardial effusion [Unknown]

NARRATIVE: CASE EVENT DATE: 20130819
